FAERS Safety Report 9260933 (Version 1)
Quarter: 2013Q2

REPORT INFORMATION
  Report Type: Spontaneous
  Country: US (occurrence: None)
  Receive Date: 20130429
  Receipt Date: 20130429
  Transmission Date: 20140414
  Serious: Yes (Hospitalization)
  Sender: FDA-Public Use
  Company Number: None

PATIENT
  Age: 36 Year
  Sex: Female
  Weight: 74.8 kg

DRUGS (1)
  1. WARFARIN [Suspect]
     Indication: DEEP VEIN THROMBOSIS
     Dosage: 5 MG DAILY PO
     Route: 048
     Dates: start: 20130421, end: 20130425

REACTIONS (1)
  - Back pain [None]
